FAERS Safety Report 16963911 (Version 2)
Quarter: 2019Q4

REPORT INFORMATION
  Report Type: Spontaneous
  Country: TW (occurrence: TW)
  Receive Date: 20191026
  Receipt Date: 20191211
  Transmission Date: 20200122
  Serious: Yes (Hospitalization, Other)
  Sender: FDA-Public Use
  Company Number: NVSC2019TW015408

PATIENT
  Age: 45 Year
  Sex: Female

DRUGS (1)
  1. GILENYA [Suspect]
     Active Substance: FINGOLIMOD HYDROCHLORIDE
     Indication: RELAPSING-REMITTING MULTIPLE SCLEROSIS
     Dosage: 0.5 MG, QD
     Route: 065
     Dates: start: 20120828, end: 20191021

REACTIONS (8)
  - Joint range of motion decreased [Unknown]
  - Erythema [Recovered/Resolved]
  - Iron deficiency anaemia [Unknown]
  - Osteomyelitis [Unknown]
  - Cryptococcosis [Unknown]
  - Peripheral swelling [Not Recovered/Not Resolved]
  - Pain in extremity [Recovered/Resolved]
  - Diabetes mellitus [Unknown]

NARRATIVE: CASE EVENT DATE: 2013
